FAERS Safety Report 13444095 (Version 2)
Quarter: 2017Q3

REPORT INFORMATION
  Report Type: Spontaneous
  Country: JP (occurrence: JP)
  Receive Date: 20170414
  Receipt Date: 20170822
  Transmission Date: 20171127
  Serious: Yes (Death, Other)
  Sender: FDA-Public Use
  Company Number: JP-009507513-1704JPN000858J

PATIENT
  Age: 82 Year
  Sex: Male
  Weight: 54 kg

DRUGS (10)
  1. CANDESARTAN. [Concomitant]
     Active Substance: CANDESARTAN
     Dosage: 2 MG, QD
     Route: 048
  2. LANSOPRAZOLE OD [Concomitant]
     Active Substance: LANSOPRAZOLE
     Dosage: 15 MG, QD
     Route: 048
  3. BAKTAR [Concomitant]
     Active Substance: SULFAMETHOXAZOLE\TRIMETHOPRIM
     Dosage: 1 DF, QD
     Route: 048
  4. BETAMETHASONE. [Suspect]
     Active Substance: BETAMETHASONE
     Dosage: 3 MG, QD
     Route: 048
     Dates: start: 20160706, end: 20160719
  5. TEMODAL [Suspect]
     Active Substance: TEMOZOLOMIDE
     Dosage: 300 MG, QD
     Route: 048
     Dates: start: 20160718, end: 20160721
  6. TEMODAL [Suspect]
     Active Substance: TEMOZOLOMIDE
     Indication: GLIOBLASTOMA MULTIFORME
     Dosage: 220 MG, QD
     Route: 048
     Dates: start: 20160523, end: 20160527
  7. TEMODAL [Suspect]
     Active Substance: TEMOZOLOMIDE
     Dosage: 300 MG, QD
     Route: 048
     Dates: start: 20160620, end: 20160624
  8. BETAMETHASONE. [Suspect]
     Active Substance: BETAMETHASONE
     Indication: BRAIN OEDEMA
     Dosage: 2.5 MG, QD
     Route: 048
     Dates: start: 20160515, end: 20160705
  9. BETAMETHASONE. [Suspect]
     Active Substance: BETAMETHASONE
     Dosage: 2.5 MG, QD
     Route: 048
     Dates: start: 20160720, end: 20160723
  10. NASEA OD [Concomitant]
     Active Substance: RAMOSETRON HYDROCHLORIDE
     Dosage: 0.1 MG, QD
     Route: 048

REACTIONS (1)
  - Pneumocystis jirovecii pneumonia [Fatal]

NARRATIVE: CASE EVENT DATE: 20160722
